FAERS Safety Report 17260151 (Version 1)
Quarter: 2020Q1

REPORT INFORMATION
  Report Type: Spontaneous
  Country: US (occurrence: US)
  Receive Date: 20200111
  Receipt Date: 20200111
  Transmission Date: 20200409
  Serious: No
  Sender: FDA-Public Use
  Company Number: US-009507513-1912USA011328

PATIENT
  Age: 63 Year
  Sex: Male

DRUGS (2)
  1. JANUVIA [Suspect]
     Active Substance: SITAGLIPTIN PHOSPHATE
     Dosage: ONE TABLET DAILY
     Route: 048
     Dates: start: 201910
  2. JANUVIA [Suspect]
     Active Substance: SITAGLIPTIN PHOSPHATE
     Dosage: ONE TABLET DAILY
     Route: 048
     Dates: start: 2013

REACTIONS (3)
  - Product packaging quantity issue [Unknown]
  - Poor quality product administered [Unknown]
  - No adverse event [Unknown]

NARRATIVE: CASE EVENT DATE: 201910
